FAERS Safety Report 5397722-5 (Version None)
Quarter: 2007Q3

REPORT INFORMATION
  Report Type: 
  Country: None (occurrence: None)
  Receive Date: 20070723
  Receipt Date: 20070723
  Transmission Date: 20080115
  Serious: No
  Sender: FDA-Public Use
  Company Number: None

PATIENT
  Age: 50 Year
  Sex: Female
  Weight: 70.3075 kg

DRUGS (1)
  1. CALCIUM NIGHT 1:1  CAL2 TABS=300 MG/MAG 2 TABS  SOURCE NATURALS [Suspect]
     Indication: OSTEOPENIA
     Dosage: 4-5 TABLETS EVERY NIGHT PO
     Route: 048
     Dates: start: 20020101, end: 20070715

REACTIONS (3)
  - DRUG HYPERSENSITIVITY [None]
  - GENERAL PHYSICAL HEALTH DETERIORATION [None]
  - PHARMACEUTICAL PRODUCT COMPLAINT [None]
